FAERS Safety Report 21945619 (Version 10)
Quarter: 2024Q1

REPORT INFORMATION
  Report Type: Spontaneous
  Country: US (occurrence: US)
  Receive Date: 20230202
  Receipt Date: 20240104
  Transmission Date: 20240410
  Serious: Yes (Hospitalization, Other)
  Sender: FDA-Public Use
  Company Number: US-PFIZER INC-PV202200040546

PATIENT
  Age: 76 Year
  Sex: Female
  Weight: 96.16 kg

DRUGS (2)
  1. IBRANCE [Suspect]
     Active Substance: PALBOCICLIB
     Indication: Breast cancer female
     Dosage: 125 MG, DAILY FOR 21 DAYS ON 7 DAYS OFF, (START WHEN ANC } 10)
     Route: 048
  2. IBRANCE [Suspect]
     Active Substance: PALBOCICLIB
     Dosage: 100 MG, CYCLIC, 1 TABLET BY MOUTH DAILY. TAKE FOR 7 DAYS ON, AND THEN 7 DAYS OFF
     Route: 048

REACTIONS (11)
  - Dyspnoea [Recovering/Resolving]
  - Atrial fibrillation [Recovering/Resolving]
  - Stress [Unknown]
  - Metabolic function test abnormal [Unknown]
  - Full blood count abnormal [Unknown]
  - Fibrin D dimer increased [Unknown]
  - Blood thyroid stimulating hormone abnormal [Unknown]
  - Troponin abnormal [Unknown]
  - Electrocardiogram abnormal [Unknown]
  - X-ray abnormal [Unknown]
  - Off label use [Unknown]

NARRATIVE: CASE EVENT DATE: 20230301
